FAERS Safety Report 9769328 (Version 1)
Quarter: 2013Q4

REPORT INFORMATION
  Report Type: Spontaneous
  Country: US (occurrence: None)
  Receive Date: 20131129
  Receipt Date: 20131129
  Transmission Date: 20140711
  Serious: No
  Sender: FDA-Public Use
  Company Number: US-145494

PATIENT
  Age: 20 Year
  Sex: Male

DRUGS (1)
  1. BOTULISM ANTITOXIN [Suspect]
     Dates: start: 20131023

REACTIONS (3)
  - Body temperature increased [None]
  - Encephalitis [None]
  - Hyperhidrosis [None]
